FAERS Safety Report 8074411-X (Version None)
Quarter: 2012Q1

REPORT INFORMATION
  Report Type: 
  Country: None (occurrence: None)
  Receive Date: 20120126
  Receipt Date: 20110819
  Transmission Date: 20120608
  Serious: Yes (Hospitalization, Other)
  Sender: FDA-Public Use
  Company Number: PK-GLAXOSMITHKLINE-B0740840A

PATIENT
  Age: 45 Year
  Sex: Female
  Weight: 55 kg

DRUGS (2)
  1. ZANTAC [Suspect]
     Indication: GASTRITIS
     Route: 042
     Dates: start: 20110812
  2. DIMENHYDRINATE [Concomitant]

REACTIONS (3)
  - CHILLS [None]
  - VOMITING [None]
  - PRODUCT QUALITY ISSUE [None]
